FAERS Safety Report 4391941-2 (Version None)
Quarter: 2004Q3

REPORT INFORMATION
  Report Type: 
  Country: None (occurrence: None)
  Receive Date: 20040701
  Receipt Date: 20040614
  Transmission Date: 20050211
  Serious: No
  Sender: FDA-Public Use
  Company Number: USA040361389

PATIENT
  Age: 76 Year
  Sex: Female
  Weight: 68 kg

DRUGS (9)
  1. FORTEO [Suspect]
     Indication: BONE DISORDER
     Dosage: 20 UG/1 DAY
     Dates: start: 20030501
  2. REMICADE (INFLIXIMAB) [Concomitant]
  3. MEDROL [Concomitant]
  4. PLAQUENIL [Concomitant]
  5. CELEBREX [Concomitant]
  6. DARVOCET-N 100 [Concomitant]
  7. NEURONTIN [Concomitant]
  8. TAGAMET [Concomitant]
  9. CONJUGATED ESTROGEN [Concomitant]

REACTIONS (5)
  - HYPERAESTHESIA [None]
  - PHARMACEUTICAL PRODUCT COMPLAINT [None]
  - RASH ERYTHEMATOUS [None]
  - SKIN IRRITATION [None]
  - TENDERNESS [None]
